FAERS Safety Report 4393370-4 (Version None)
Quarter: 2004Q3

REPORT INFORMATION
  Report Type: 
  Country: None (occurrence: None)
  Receive Date: 20040707
  Receipt Date: 20040707
  Transmission Date: 20050211
  Serious: Yes (Life-Threatening)
  Sender: FDA-Public Use
  Company Number: None

PATIENT
  Age: 68 Year
  Sex: Female

DRUGS (1)
  1. MORPHINE [Suspect]
     Indication: PAIN
     Dosage: 4 MG IV
     Route: 042
     Dates: start: 20040402, end: 20040402

REACTIONS (2)
  - POST PROCEDURAL COMPLICATION [None]
  - RESPIRATORY ARREST [None]
